FAERS Safety Report 6114918-5 (Version None)
Quarter: 2009Q1

REPORT INFORMATION
  Report Type: 
  Country: None (occurrence: None)
  Receive Date: 20090313
  Receipt Date: 20090310
  Transmission Date: 20090719
  Serious: Yes (Death, Other)
  Sender: FDA-Public Use
  Company Number: PHHY2009AT08604

PATIENT
  Age: 64 Year
  Sex: Male

DRUGS (13)
  1. CYCLOSPORINE [Suspect]
     Indication: ENTEROCOCCAL INFECTION
  2. CYCLOSPORINE [Suspect]
     Indication: PSEUDOMONAS INFECTION
  3. CYCLOSPORINE [Suspect]
     Indication: PNEUMONIA
  4. PREDNISONE [Concomitant]
     Dosage: 75 MG/DAY
  5. VALGANCICLOVIR HCL [Concomitant]
  6. PENCICLOVIR [Concomitant]
  7. SULFAMETHOXAZOLE AND TRIMETHOPRIM [Concomitant]
  8. VORICONAZOLE [Concomitant]
  9. AMPHOTERICIN B [Concomitant]
  10. CASPOFUNGIN [Concomitant]
  11. VANCOMYCIN [Concomitant]
  12. MOXIFLOXACIN HCL [Concomitant]
  13. CEFPIROME [Concomitant]

REACTIONS (9)
  - ACUTE HEPATIC FAILURE [None]
  - CYTOMEGALOVIRUS INFECTION [None]
  - HERPES SIMPLEX [None]
  - INFLUENZA LIKE ILLNESS [None]
  - LEUKOPENIA [None]
  - MULTI-ORGAN FAILURE [None]
  - ORAL HERPES [None]
  - PANCREATITIS [None]
  - SEPSIS [None]
